FAERS Safety Report 6430119-5 (Version None)
Quarter: 2009Q4

REPORT INFORMATION
  Report Type: 
  Country: None (occurrence: None)
  Receive Date: 20091106
  Receipt Date: 20091028
  Transmission Date: 20100525
  Serious: Yes (Hospitalization)
  Sender: FDA-Public Use
  Company Number: CH-JNJFOC-20091008871

PATIENT
  Age: 74 Year
  Sex: Female
  Weight: 56.5 kg

DRUGS (17)
  1. REMICADE [Suspect]
     Route: 042
     Dates: start: 20090701, end: 20091012
  2. REMICADE [Suspect]
     Indication: AORTITIS
     Route: 042
     Dates: start: 20090701, end: 20091012
  3. PREDNISONE TAB [Suspect]
     Route: 048
  4. PREDNISONE TAB [Suspect]
     Indication: AORTITIS
     Route: 048
  5. METHOTREXATE [Suspect]
     Route: 058
  6. METHOTREXATE [Suspect]
     Indication: AORTITIS
     Route: 058
  7. ASPIRIN [Concomitant]
     Route: 048
  8. CALCIMAGON-D 3 [Concomitant]
     Route: 048
  9. ACIDUM FOLICUM [Concomitant]
     Route: 048
  10. NEXIUM [Concomitant]
     Route: 048
  11. AMITRIPTYLINE HYDROCHLORIDE [Concomitant]
     Route: 048
  12. CONCOR [Concomitant]
     Route: 048
  13. TRIATEC [Concomitant]
     Route: 048
  14. NOVALGIN [Concomitant]
     Route: 048
  15. FLUIMUCIL [Concomitant]
     Route: 048
  16. FRAGMIN [Concomitant]
     Route: 058
  17. MAGNESIOCARD [Concomitant]
     Route: 048

REACTIONS (4)
  - ALVEOLITIS [None]
  - BACTERIAL TEST POSITIVE [None]
  - PNEUMOCYSTIS JIROVECI PNEUMONIA [None]
  - TRANSAMINASES INCREASED [None]
